FAERS Safety Report 8322659-9 (Version None)
Quarter: 2012Q2

REPORT INFORMATION
  Report Type: 
  Country: None (occurrence: None)
  Receive Date: 20120430
  Receipt Date: 20120424
  Transmission Date: 20120825
  Serious: Yes (Hospitalization)
  Sender: FDA-Public Use
  Company Number: US-MERCK-1204USA03831

PATIENT
  Age: 72 Year
  Sex: Male

DRUGS (3)
  1. HYZAAR [Suspect]
     Indication: HYPERTENSION
     Route: 048
     Dates: start: 20100101, end: 20120101
  2. PRADAXA [Concomitant]
     Route: 065
  3. HYZAAR [Suspect]
     Route: 048
     Dates: start: 20120101

REACTIONS (1)
  - DRUG INEFFECTIVE [None]
